FAERS Safety Report 13519065 (Version 3)
Quarter: 2017Q4

REPORT INFORMATION
  Report Type: Spontaneous
  Country: GB (occurrence: GB)
  Receive Date: 20170505
  Receipt Date: 20171109
  Transmission Date: 20180320
  Serious: Yes (Hospitalization, Other)
  Sender: FDA-Public Use
  Company Number: GB-MYLANLABS-2017M1026506

PATIENT
  Age: 30 Year
  Sex: Female

DRUGS (10)
  1. TENOFOVIR DISOPROXIL FUMARATE. [Suspect]
     Active Substance: TENOFOVIR DISOPROXIL FUMARATE
     Dosage: UNK
     Dates: start: 201404
  2. EMTRIVA [Suspect]
     Active Substance: EMTRICITABINE
     Dosage: UNK
     Dates: start: 201404
  3. LAMIVUDINE. [Suspect]
     Active Substance: LAMIVUDINE
     Indication: HIV INFECTION
     Dosage: UNK
     Dates: start: 201407
  4. PREZISTA [Suspect]
     Active Substance: DARUNAVIR ETHANOLATE
     Dosage: UNK
     Dates: start: 201404
  5. ISENTRESS [Suspect]
     Active Substance: RALTEGRAVIR POTASSIUM
     Indication: HIV INFECTION
     Dosage: UNK
     Dates: start: 201411, end: 201412
  6. ABACAVIR SULFATE. [Suspect]
     Active Substance: ABACAVIR SULFATE
     Indication: HIV INFECTION
     Dosage: UNK
     Dates: start: 201407
  7. LAMIVUDINE. [Suspect]
     Active Substance: LAMIVUDINE
     Indication: HIV INFECTION
  8. TIVICAY [Suspect]
     Active Substance: DOLUTEGRAVIR SODIUM
     Indication: HIV INFECTION
     Dosage: UNK
     Dates: start: 201407, end: 201410
  9. RITONAVIR. [Suspect]
     Active Substance: RITONAVIR
     Indication: HIV INFECTION
     Dosage: UNK
     Dates: start: 201410, end: 201411
  10. CELSENTRI [Suspect]
     Active Substance: MARAVIROC
     Indication: HIV INFECTION
     Dosage: 300 MG, BID
     Dates: start: 201412

REACTIONS (11)
  - Anxiety [Unknown]
  - Hyperbilirubinaemia [Unknown]
  - Live birth [Unknown]
  - Social avoidant behaviour [Unknown]
  - Rash generalised [Unknown]
  - Generalised anxiety disorder [Unknown]
  - Palpitations [Unknown]
  - Exposure during pregnancy [Unknown]
  - Dermatitis exfoliative [Unknown]
  - Rash maculo-papular [Unknown]
  - Panic attack [Unknown]

NARRATIVE: CASE EVENT DATE: 2014
